FAERS Safety Report 6499884-5 (Version None)
Quarter: 2009Q4

REPORT INFORMATION
  Report Type: 
  Country: None (occurrence: None)
  Receive Date: 20091214
  Receipt Date: 20091214
  Transmission Date: 20100525
  Serious: Yes (Life-Threatening, Hospitalization)
  Sender: FDA-Public Use
  Company Number: None

PATIENT
  Age: 38 Year
  Sex: Female
  Weight: 79.3795 kg

DRUGS (1)
  1. SPRINTEC [Suspect]
     Indication: MENSTRUAL DISORDER
     Dosage: 1 PILL DAILY PO
     Route: 048
     Dates: start: 20090515, end: 20091204

REACTIONS (2)
  - HAEMORRHAGE [None]
  - THROMBOTIC STROKE [None]
